FAERS Safety Report 6332688-2 (Version None)
Quarter: 2009Q3

REPORT INFORMATION
  Report Type: 
  Country: None (occurrence: None)
  Receive Date: 20090828
  Receipt Date: 20090511
  Transmission Date: 20100115
  Serious: Yes (Death)
  Sender: FDA-Public Use
  Company Number: NSADSS2001025503

PATIENT
  Sex: Male
  Weight: 76 kg

DRUGS (8)
  1. REMICADE [Suspect]
     Route: 041
     Dates: start: 20010219
  2. REMICADE [Suspect]
     Indication: RHEUMATOID ARTHRITIS
     Route: 041
     Dates: start: 20010219
  3. COZAAR [Concomitant]
  4. DELACORT [Concomitant]
  5. IMURAN [Concomitant]
  6. PRILOSEC [Concomitant]
  7. NAPROSYN [Concomitant]
  8. INSULATARD [Concomitant]

REACTIONS (4)
  - CARDIAC FAILURE [None]
  - CARDIOMEGALY [None]
  - PNEUMONIA PNEUMOCOCCAL [None]
  - PNEUMONITIS [None]
